FAERS Safety Report 21170512 (Version 2)
Quarter: 2022Q3

REPORT INFORMATION
  Report Type: Report from Study
  Country: GB (occurrence: GB)
  Receive Date: 20220804
  Receipt Date: 20220907
  Transmission Date: 20221026
  Serious: Yes (Hospitalization, Other)
  Sender: FDA-Public Use
  Company Number: GB-CELGENE-GBR-20210505636

PATIENT
  Age: 66 Year
  Sex: Female
  Weight: 68.5 kg

DRUGS (2)
  1. PACLITAXEL [Suspect]
     Active Substance: PACLITAXEL
     Indication: Pancreatic carcinoma metastatic
     Dosage: FREQUENCY TEXT: NOT PROVIDED?C14 D8
     Route: 042
     Dates: start: 20200320, end: 20210514
  2. GEMCITABINE [Suspect]
     Active Substance: GEMCITABINE
     Indication: Pancreatic carcinoma metastatic
     Dosage: FREQUENCY TEXT: NOT PROVIDED?C14 D8
     Route: 042
     Dates: start: 20200320, end: 20210514

REACTIONS (3)
  - Febrile neutropenia [Recovered/Resolved]
  - Neutropenic sepsis [Not Recovered/Not Resolved]
  - Biliary tract infection [Recovered/Resolved]

NARRATIVE: CASE EVENT DATE: 20210520
